FAERS Safety Report 18781016 (Version 1)
Quarter: 2021Q1

REPORT INFORMATION
  Report Type: Spontaneous
  Country: US (occurrence: US)
  Receive Date: 20210122
  Receipt Date: 20210122
  Transmission Date: 20210419
  Serious: Yes (Hospitalization)
  Sender: FDA-Public Use
  Company Number: None

PATIENT
  Sex: Male
  Weight: 25.4 kg

DRUGS (6)
  1. CYTARABINE. [Suspect]
     Active Substance: CYTARABINE
     Dates: end: 20180506
  2. ONCASPAR [Suspect]
     Active Substance: PEGASPARGASE
     Dates: end: 20180510
  3. METHOTREXATE. [Suspect]
     Active Substance: METHOTREXATE
     Dates: end: 20180515
  4. VINCRISTINE SULFATE. [Suspect]
     Active Substance: VINCRISTINE SULFATE
     Dates: end: 20180522
  5. DAUNORUBICIN [Suspect]
     Active Substance: DAUNORUBICIN
     Dates: end: 20180521
  6. DEXAMETHASONE. [Suspect]
     Active Substance: DEXAMETHASONE
     Dates: end: 20180520

REACTIONS (26)
  - Abdominal discomfort [None]
  - Flatulence [None]
  - Small intestinal obstruction [None]
  - Electrolyte imbalance [None]
  - Hypokalaemia [None]
  - Respiratory distress [None]
  - Intestinal perforation [None]
  - Dyschezia [None]
  - Ileus [None]
  - Tachycardia [None]
  - Nausea [None]
  - Vomiting [None]
  - Mucosal hypertrophy [None]
  - Ascites [None]
  - Faeces hard [None]
  - Tachypnoea [None]
  - Pneumoperitoneum [None]
  - Abdominal pain [None]
  - Constipation [None]
  - Diarrhoea [None]
  - Chest discomfort [None]
  - Intestinal dilatation [None]
  - General physical health deterioration [None]
  - Abdominal distension [None]
  - Intestinal ischaemia [None]
  - Peritonitis [None]

NARRATIVE: CASE EVENT DATE: 20180527
